FAERS Safety Report 6392572-5 (Version None)
Quarter: 2009Q4

REPORT INFORMATION
  Report Type: 
  Country: None (occurrence: None)
  Receive Date: 20091007
  Receipt Date: 20090630
  Transmission Date: 20100525
  Serious: No
  Sender: FDA-Public Use
  Company Number: US-ALLERGAN-0908877US

PATIENT
  Age: 61 Year
  Sex: Female
  Weight: 68.027 kg

DRUGS (1)
  1. LATISSE [Suspect]
     Indication: DRUG USE FOR UNKNOWN INDICATION
     Dosage: 1 GTT, QD
     Route: 061
     Dates: start: 20090529, end: 20090609

REACTIONS (5)
  - ERYTHEMA OF EYELID [None]
  - EYE DISCHARGE [None]
  - EYE PAIN [None]
  - EYE PRURITUS [None]
  - EYELID DISORDER [None]
